FAERS Safety Report 25173820 (Version 1)
Quarter: 2025Q2

REPORT INFORMATION
  Report Type: Spontaneous
  Country: US (occurrence: US)
  Receive Date: 20250408
  Receipt Date: 20250408
  Transmission Date: 20250716
  Serious: Yes (Other)
  Sender: TEVA
  Company Number: US-TEVA-VS-3316653

PATIENT
  Age: 73 Year
  Sex: Female

DRUGS (1)
  1. TORSEMIDE [Suspect]
     Active Substance: TORSEMIDE
     Indication: Product used for unknown indication
     Route: 048

REACTIONS (7)
  - Chronic kidney disease [Unknown]
  - Joint swelling [Unknown]
  - Knee arthroplasty [Unknown]
  - Drug dependence [Unknown]
  - Type 2 diabetes mellitus [Unknown]
  - Arthralgia [Unknown]
  - Drug effect less than expected [Unknown]
